FAERS Safety Report 23105311 (Version 1)
Quarter: 2023Q4

REPORT INFORMATION
  Report Type: Spontaneous
  Country: US (occurrence: US)
  Receive Date: 20231025
  Receipt Date: 20231025
  Transmission Date: 20240110
  Serious: No
  Sender: FDA-Public Use
  Company Number: US-NEUROCRINE BIOSCIENCES INC.-2023NBI08945

PATIENT

DRUGS (4)
  1. INGREZZA [Suspect]
     Active Substance: VALBENAZINE
     Indication: Tardive dyskinesia
     Dosage: 40 MILLIGRAM, QD
     Route: 065
     Dates: start: 202309
  2. RISPERIDONE [Concomitant]
     Active Substance: RISPERIDONE
     Dosage: 3 MILLIGRAM, BID
  3. CLONAZEPAM [Concomitant]
     Active Substance: CLONAZEPAM
  4. TRAZODONE [Concomitant]
     Active Substance: TRAZODONE HYDROCHLORIDE
     Indication: Insomnia
     Dosage: 100 MILLIGRAM, QHS

REACTIONS (4)
  - Muscle twitching [Unknown]
  - Loss of personal independence in daily activities [Unknown]
  - Fall [Unknown]
  - Drooling [Unknown]

NARRATIVE: CASE EVENT DATE: 20230101
